FAERS Safety Report 5085291-9 (Version None)
Quarter: 2006Q3

REPORT INFORMATION
  Report Type: 
  Country: None (occurrence: None)
  Receive Date: 20060817
  Receipt Date: 20060714
  Transmission Date: 20061208
  Serious: Yes (Disabling, Other)
  Sender: FDA-Public Use
  Company Number: 2005149296

PATIENT
  Age: 56 Year
  Sex: Male
  Weight: 117.9352 kg

DRUGS (4)
  1. BEXTRA [Suspect]
     Indication: BACK INJURY
     Dosage: 10 MG (10 MG, 1 IN 1 D);
     Dates: start: 20040506, end: 20041128
  2. TARKA [Concomitant]
  3. TEVETEN [Concomitant]
  4. ASPIRIN [Concomitant]

REACTIONS (2)
  - AMNESIA [None]
  - ISCHAEMIC STROKE [None]
